FAERS Safety Report 10201273 (Version 2)
Quarter: 2014Q2

REPORT INFORMATION
  Report Type: Spontaneous
  Country: JP (occurrence: JP)
  Receive Date: 20140528
  Receipt Date: 20140528
  Transmission Date: 20141212
  Serious: Yes (Hospitalization)
  Sender: FDA-Public Use
  Company Number: JP-PFIZER INC-A035337

PATIENT
  Age: 5 Year
  Sex: Male
  Weight: 20 kg

DRUGS (6)
  1. ZITHROMAC [Suspect]
     Indication: BRONCHITIS
     Dosage: DAILY
     Route: 048
     Dates: start: 20001010, end: 20001012
  2. ZITHROMAC [Suspect]
     Indication: TONSILLITIS
  3. ZITHROMAC [Suspect]
     Indication: PHARYNGITIS
  4. PROCATEROL HYDROCHLORIDE [Concomitant]
     Route: 048
     Dates: start: 20001010
  5. DEXTROMETHORPHAN HYDROBROMIDE [Concomitant]
     Route: 048
     Dates: start: 20001010
  6. CHLORPHENIRAMINE MALEATE [Concomitant]
     Route: 048
     Dates: start: 20001010

REACTIONS (9)
  - Stevens-Johnson syndrome [Recovered/Resolved]
  - Varicella [Recovered/Resolved]
  - Visual impairment [Recovered/Resolved]
  - White blood cell count increased [Recovered/Resolved]
  - Haemoglobin decreased [Recovered/Resolved]
  - C-reactive protein increased [Recovered/Resolved]
  - Blood fibrinogen increased [Recovered/Resolved]
  - Platelet count increased [Recovered/Resolved]
  - Allergy test positive [Recovered/Resolved]
